FAERS Safety Report 5313191-5 (Version None)
Quarter: 2007Q2

REPORT INFORMATION
  Report Type: 
  Country: None (occurrence: None)
  Receive Date: 20070424
  Receipt Date: 20070409
  Transmission Date: 20071010
  Serious: Yes (Hospitalization)
  Sender: FDA-Public Use
  Company Number: 2007000417

PATIENT
  Age: 48 Year
  Sex: Female

DRUGS (3)
  1. TARCEVA [Suspect]
     Indication: NON-SMALL CELL LUNG CANCER
     Dosage: 150 MG, ORAL
     Route: 048
     Dates: start: 20070209, end: 20070216
  2. STEROID NOS [Suspect]
  3. STEROID [Concomitant]

REACTIONS (1)
  - BIPOLAR I DISORDER [None]
